FAERS Safety Report 22378251 (Version 1)
Quarter: 2023Q2

REPORT INFORMATION
  Report Type: Spontaneous
  Country: US (occurrence: US)
  Receive Date: 20230529
  Receipt Date: 20230529
  Transmission Date: 20230721
  Serious: Yes (Other)
  Sender: FDA-Public Use
  Company Number: US-ALKEM LABORATORIES LIMITED-US-ALKEM-2023-05268

PATIENT
  Age: 14 Year
  Sex: Male

DRUGS (3)
  1. DEFERASIROX [Suspect]
     Active Substance: DEFERASIROX
     Indication: Sickle cell disease
     Dosage: 25 MILLIGRAM/KILOGRAM, QD
     Route: 065
  2. DEFERASIROX [Suspect]
     Active Substance: DEFERASIROX
     Dosage: UNK, RESTARTED
     Route: 065
  3. DEFERASIROX [Suspect]
     Active Substance: DEFERASIROX
     Dosage: 23 MILLIGRAM/KILOGRAM, QD
     Route: 065

REACTIONS (4)
  - Encephalopathy [Recovering/Resolving]
  - Lactic acidosis [Recovering/Resolving]
  - Acute hepatic failure [Recovering/Resolving]
  - Hyperammonaemia [Recovered/Resolved]
